FAERS Safety Report 24404318 (Version 1)
Quarter: 2024Q4

REPORT INFORMATION
  Report Type: Spontaneous
  Country: US (occurrence: US)
  Receive Date: 20241007
  Receipt Date: 20241007
  Transmission Date: 20250115
  Serious: Yes (Hospitalization, Other)
  Sender: EPIC PHARM
  Company Number: US-EPICPHARMA-US-2024EPCLIT01182

PATIENT
  Age: 60 Year
  Sex: Male

DRUGS (5)
  1. ERYTHROMYCIN [Suspect]
     Active Substance: ERYTHROMYCIN
     Indication: Thermal burns of eye
     Route: 061
  2. KETAMINE [Suspect]
     Active Substance: KETAMINE
     Indication: Sedation
     Route: 065
  3. HYDROXYZINE [Suspect]
     Active Substance: HYDROXYZINE HYDROCHLORIDE
     Indication: Sedation
     Route: 065
  4. SPIRONOLACTONE [Suspect]
     Active Substance: SPIRONOLACTONE
     Indication: Oliguria
     Route: 065
  5. RINGERS LACTATE [CALCIUM CHLORIDE;POTASSIUM CHLORIDE;SODIUM LACTATE] [Concomitant]
     Indication: Thermal burn
     Route: 065

REACTIONS (2)
  - Porphyria acute [Unknown]
  - Product use in unapproved indication [Unknown]
